FAERS Safety Report 7763301-5 (Version None)
Quarter: 2011Q3

REPORT INFORMATION
  Report Type: 
  Country: None (occurrence: None)
  Receive Date: 20110920
  Receipt Date: 20110124
  Transmission Date: 20111222
  Serious: No
  Sender: FDA-Public Use
  Company Number: US-BAYER-2011-035108

PATIENT
  Age: 18 Year
  Sex: Male
  Weight: 63 kg

DRUGS (3)
  1. ALEVE (CAPLET) [Suspect]
     Indication: VIRAL INFECTION
     Dosage: UNK, Q4HR
     Route: 048
     Dates: start: 20110120, end: 20110121
  2. ANTIBIOTICS [Concomitant]
  3. ALEVE (CAPLET) [Suspect]
     Indication: URINARY TRACT INFECTION

REACTIONS (2)
  - RASH [None]
  - CHEST DISCOMFORT [None]
